FAERS Safety Report 4708359-2 (Version None)
Quarter: 2005Q3

REPORT INFORMATION
  Report Type: 
  Country: None (occurrence: None)
  Receive Date: 20050707
  Receipt Date: 20050601
  Transmission Date: 20060218
  Serious: Yes (Life-Threatening, Other)
  Sender: FDA-Public Use
  Company Number: 2005AP03208

PATIENT
  Age: 10775 Day
  Sex: Female
  Weight: 83 kg

DRUGS (7)
  1. CARBOCAIN [Suspect]
     Indication: INFILTRATION ANAESTHESIA
     Dates: start: 20050113, end: 20050113
  2. MEILAX [Concomitant]
     Route: 048
  3. LORAZEPAM [Concomitant]
     Route: 048
  4. LENDORMIN [Concomitant]
     Route: 048
  5. TERNELIN [Concomitant]
     Route: 048
  6. PRIMPERAN INJ [Concomitant]
     Route: 048
  7. SELBEX [Concomitant]
     Route: 048

REACTIONS (2)
  - ASTHMA [None]
  - CYANOSIS [None]
